FAERS Safety Report 25003840 (Version 4)
Quarter: 2025Q4

REPORT INFORMATION
  Report Type: Report from Study
  Country: US (occurrence: US)
  Receive Date: 20250224
  Receipt Date: 20251110
  Transmission Date: 20260118
  Serious: Yes (Other)
  Sender: NOVARTIS
  Company Number: US-002147023-NVSC2025US002964

PATIENT
  Sex: Female

DRUGS (20)
  1. ILARIS [Suspect]
     Active Substance: CANAKINUMAB
     Indication: Still^s disease
     Dosage: 300 MG, QMO
     Route: 065
     Dates: start: 2022
  2. ILARIS [Suspect]
     Active Substance: CANAKINUMAB
     Dosage: UNK
     Route: 065
     Dates: start: 20220615
  3. ILARIS [Suspect]
     Active Substance: CANAKINUMAB
     Dosage: 300 MG, OTHER (Q 4 WEEKS)
     Route: 058
     Dates: start: 20221021
  4. ILARIS [Suspect]
     Active Substance: CANAKINUMAB
     Dosage: 300 MG, Q4W (REFILLED ON START DATE)
     Route: 058
     Dates: start: 20241212
  5. ILARIS [Suspect]
     Active Substance: CANAKINUMAB
     Dosage: 300 MG, QMO
     Route: 058
  6. HYDROCHLOROTHIAZIDE [Concomitant]
     Active Substance: HYDROCHLOROTHIAZIDE
     Indication: Product used for unknown indication
     Dosage: 1 DOSAGE FORM, QD (12.5 MGTABLET)
     Route: 048
     Dates: start: 20220920
  7. PANTOPRAZOLE [Concomitant]
     Active Substance: PANTOPRAZOLE
     Indication: Product used for unknown indication
     Dosage: 1 DOSAGE FORM, QD (DELAYED RELEASE)(40 MG TABLET)
     Route: 048
     Dates: start: 20220920
  8. DICLOFENAC [Concomitant]
     Active Substance: DICLOFENAC
     Indication: Product used for unknown indication
     Dosage: APPLY 2 TUBE BY TOPICAL ROUTE 4 TIMES EVERY DAY TO AFFECTED AREA (1 PERECNT GEL), Q6H
     Route: 050
     Dates: start: 20220920
  9. DICLOFENAC [Concomitant]
     Active Substance: DICLOFENAC
     Dosage: APPLY 2 GRAM BY TOPICAL ROUTE 4 TIMES EVERY DAY TO AFFECTED AREA (GEL), Q6H
     Route: 050
     Dates: start: 20241119
  10. VILAZODONE [Concomitant]
     Active Substance: VILAZODONE
     Indication: Product used for unknown indication
     Dosage: 2 DOSAGE FORM, QD (WITH FOOD) (20 MG TABLETS)
     Route: 048
     Dates: start: 20220920
  11. SUMATRIPTAN [Concomitant]
     Active Substance: SUMATRIPTAN
     Indication: Migraine
     Dosage: 1 DOSAGE FORM, AFTER ONSET OF MIGRAINE, MAY REPEAT AFTER 2 HOURS IF HEADACHE RETURNS, NOT TO EXCEED
     Route: 048
     Dates: start: 20220920
  12. SUMATRIPTAN [Concomitant]
     Active Substance: SUMATRIPTAN
     Indication: Headache
  13. ONDANSETRON [Concomitant]
     Active Substance: ONDANSETRON
     Indication: Product used for unknown indication
     Dosage: 1 DOSAGE FORM (DISINTEGRATING TABLET), QH (PLACE ON THE TOP OF THE TONGUE WHERE THEY DISSOLVE THEN S
     Route: 048
     Dates: start: 20220920
  14. COLCHICINE [Concomitant]
     Active Substance: COLCHICINE
     Indication: Gout
     Dosage: 1 DOSAGE FORM, QD (0.6 MG TABLET)
     Route: 048
     Dates: start: 20231102
  15. LEFLUNOMIDE [Concomitant]
     Active Substance: LEFLUNOMIDE
     Indication: Product used for unknown indication
     Dosage: 1 DOSAGE FORM, QD (REFILLED ON START DATE) (10 MG TABLET)
     Route: 048
     Dates: start: 20231214, end: 20250109
  16. HYDROXYCHLOROQUINE [Concomitant]
     Active Substance: HYDROXYCHLOROQUINE
     Indication: Product used for unknown indication
     Dosage: 1 DOSAGE FORM, BID (200 MG TABLET)
     Route: 048
     Dates: start: 20240621, end: 20250109
  17. CELEBREX [Concomitant]
     Active Substance: CELECOXIB
     Indication: Product used for unknown indication
     Dosage: 1 DOSAGE FORM, BID (REFILLED ON START DATE) (100MG CAPSULE)
     Route: 048
     Dates: start: 20241112
  18. TREMFYA [Concomitant]
     Active Substance: GUSELKUMAB
     Indication: Product used for unknown indication
     Dosage: UNK (3 SAMPLES GIVEN)
     Route: 065
  19. PREDNISONE [Concomitant]
     Active Substance: PREDNISONE
     Indication: Arthritis
     Dosage: UNK
     Route: 065
  20. ZEPBOUND [Concomitant]
     Active Substance: TIRZEPATIDE
     Indication: Product used for unknown indication
     Dosage: 2.5 MG, Q4W (PEN INJECTOR) (2.5MG/0.5ML SUBCUTANEOUS PEN INJECTOR))
     Route: 058

REACTIONS (27)
  - Pneumonia [Unknown]
  - Rheumatoid arthritis [Unknown]
  - Pain [Unknown]
  - Musculoskeletal stiffness [Unknown]
  - Swelling [Unknown]
  - Arthropathy [Unknown]
  - Fatigue [Unknown]
  - Still^s disease [Unknown]
  - Condition aggravated [Unknown]
  - Polyarthritis [Unknown]
  - Psoriatic arthropathy [Unknown]
  - Eye pain [Unknown]
  - Constipation [Unknown]
  - Diarrhoea [Unknown]
  - Sleep disorder [Unknown]
  - Arthralgia [Unknown]
  - Joint stiffness [Unknown]
  - Joint swelling [Unknown]
  - Muscular weakness [Unknown]
  - Sleep apnoea syndrome [Unknown]
  - Psoriasis [Unknown]
  - Rash [Unknown]
  - Bursitis [Unknown]
  - Obesity [Unknown]
  - Tendon discomfort [Unknown]
  - Gastrointestinal disorder [Unknown]
  - Irritable bowel syndrome [Unknown]
